FAERS Safety Report 16029837 (Version 1)
Quarter: 2019Q1

REPORT INFORMATION
  Report Type: Spontaneous
  Country: US (occurrence: US)
  Receive Date: 20190304
  Receipt Date: 20190304
  Transmission Date: 20190418
  Serious: No
  Sender: FDA-Public Use
  Company Number: US-009507513-1902USA012359

PATIENT
  Sex: Female

DRUGS (1)
  1. FOLLISTIM [Suspect]
     Active Substance: FOLLITROPIN
     Indication: INFERTILITY FEMALE
     Dosage: 300 INTERNATIONAL UNIT, QD
     Route: 058
     Dates: start: 20190110

REACTIONS (4)
  - Hair texture abnormal [Unknown]
  - Abdominal distension [Unknown]
  - Dry skin [Unknown]
  - Hair colour changes [Unknown]

NARRATIVE: CASE EVENT DATE: 2019
